FAERS Safety Report 6957801-5 (Version None)
Quarter: 2010Q3

REPORT INFORMATION
  Report Type: 
  Country: None (occurrence: None)
  Receive Date: 20100831
  Receipt Date: 20100323
  Transmission Date: 20110219
  Serious: Yes (Other)
  Sender: FDA-Public Use
  Company Number: US-BAYER-201014024NA

PATIENT
  Age: 24 Year
  Sex: Female
  Weight: 73 kg

DRUGS (6)
  1. OCELLA [Suspect]
     Indication: ORAL CONTRACEPTION
     Route: 048
     Dates: start: 20081001, end: 20091001
  2. YASMIN [Suspect]
     Indication: PRODUCT USED FOR UNKNOWN INDICATION
     Route: 048
     Dates: start: 20081218
  3. YAZ [Suspect]
     Indication: PRODUCT USED FOR UNKNOWN INDICATION
     Route: 048
  4. AMBIEN [Concomitant]
     Dates: start: 20080801
  5. ORTHO TRI-CYCLEN [Concomitant]
  6. PHENTERMINE [Concomitant]
     Indication: OBESITY
     Dates: start: 20081101

REACTIONS (5)
  - ABDOMINAL PAIN UPPER [None]
  - BACK PAIN [None]
  - CHEST PAIN [None]
  - CHOLELITHIASIS [None]
  - GALLBLADDER DISORDER [None]
